FAERS Safety Report 11007060 (Version 1)
Quarter: 2015Q2

REPORT INFORMATION
  Report Type: Spontaneous
  Country: US (occurrence: US)
  Receive Date: 20150409
  Receipt Date: 20150409
  Transmission Date: 20150821
  Serious: No
  Sender: FDA-Public Use
  Company Number: US-ALLERGAN-1502517US

PATIENT
  Age: 59 Year
  Sex: Female

DRUGS (2)
  1. PROVIGIL [Concomitant]
     Active Substance: MODAFINIL
     Dosage: UNK
  2. LATISSE [Suspect]
     Active Substance: BIMATOPROST
     Indication: GROWTH OF EYELASHES
     Dosage: 2 GTT, QHS
     Route: 061

REACTIONS (2)
  - Therapeutic response decreased [Unknown]
  - Madarosis [Unknown]
